FAERS Safety Report 14769369 (Version 1)
Quarter: 2018Q2

REPORT INFORMATION
  Report Type: Spontaneous
  Country: CA (occurrence: CA)
  Receive Date: 20180417
  Receipt Date: 20180417
  Transmission Date: 20180711
  Serious: Yes (Other)
  Sender: FDA-Public Use
  Company Number: CA-TEVA-2018-CA-882725

PATIENT
  Age: 49 Year
  Sex: Male

DRUGS (4)
  1. VALSARTAN AND HYDROCHLOROTHIAZIDE [Concomitant]
     Active Substance: HYDROCHLOROTHIAZIDE\VALSARTAN
  2. NOVO METHYLPHENIDATE ER-C [Suspect]
     Active Substance: METHYLPHENIDATE
     Indication: ATTENTION DEFICIT/HYPERACTIVITY DISORDER
     Route: 065
  3. TEVA-METHYLPHENIDATE ER-C [Suspect]
     Active Substance: METHYLPHENIDATE
     Indication: ATTENTION DEFICIT/HYPERACTIVITY DISORDER
     Route: 065
  4. AERIUS [Concomitant]
     Active Substance: DESLORATADINE

REACTIONS (6)
  - Muscle tightness [Recovered/Resolved]
  - Feeling jittery [Recovered/Resolved]
  - Neck pain [Recovered/Resolved]
  - Product substitution issue [Recovered/Resolved]
  - Central nervous system stimulation [Recovered/Resolved]
  - Psychomotor hyperactivity [Recovered/Resolved]
